FAERS Safety Report 5870889-8 (Version None)
Quarter: 2008Q3

REPORT INFORMATION
  Report Type: 
  Country: None (occurrence: None)
  Receive Date: 20080829
  Receipt Date: 20080815
  Transmission Date: 20090109
  Serious: No
  Sender: FDA-Public Use
  Company Number: NY080283

PATIENT

DRUGS (1)
  1. CHLORASCRUB SWAB [Suspect]
     Indication: INFECTION PROPHYLAXIS
     Dosage: 1 ML SKIN APPLICATION
     Dates: start: 20080515, end: 20080815

REACTIONS (2)
  - INFECTION [None]
  - PHLEBITIS [None]
